FAERS Safety Report 18887668 (Version 1)
Quarter: 2021Q1

REPORT INFORMATION
  Report Type: Spontaneous
  Country: US (occurrence: US)
  Receive Date: 20210212
  Receipt Date: 20210212
  Transmission Date: 20210420
  Serious: No
  Sender: FDA-Public Use
  Company Number: US-BAUSCH-BL-2021-001487

PATIENT
  Sex: Female

DRUGS (2)
  1. ALREX [Suspect]
     Active Substance: LOTEPREDNOL ETABONATE
     Indication: PRODUCT USE IN UNAPPROVED INDICATION
  2. ALREX [Suspect]
     Active Substance: LOTEPREDNOL ETABONATE
     Indication: CORNEAL EROSION
     Route: 065

REACTIONS (3)
  - Product prescribing error [Unknown]
  - Eye irritation [Unknown]
  - Product use in unapproved indication [Unknown]
